FAERS Safety Report 13024304 (Version 2)
Quarter: 2017Q1

REPORT INFORMATION
  Report Type: Spontaneous
  Country: JP (occurrence: JP)
  Receive Date: 20161213
  Receipt Date: 20170222
  Transmission Date: 20170428
  Serious: Yes (Hospitalization, Other)
  Sender: FDA-Public Use
  Company Number: JP-BAYER-2016-228396

PATIENT
  Age: 79 Year
  Sex: Male
  Weight: 49.1 kg

DRUGS (9)
  1. ADALAT CC [Suspect]
     Active Substance: NIFEDIPINE
     Dosage: UNK
     Route: 048
  2. HYDROCORTISONE SODIUM SUCCINATE [Suspect]
     Active Substance: HYDROCORTISONE SODIUM SUCCINATE
     Indication: SUDDEN HEARING LOSS
     Dosage: 500 MG, UNK
     Route: 041
  3. PRAVASTATIN SODIUM. [Concomitant]
     Active Substance: PRAVASTATIN SODIUM
     Dosage: UNK UNK, QD
     Route: 048
  4. BAYASPIRIN 100 MG [Suspect]
     Active Substance: ASPIRIN
     Dosage: UNK
     Route: 048
  5. TELMISARTAN. [Concomitant]
     Active Substance: TELMISARTAN
     Dosage: UNK
     Route: 048
  6. ADENOSINE TRIPHOSPHATE [Suspect]
     Active Substance: ADENOSINE TRIPHOSPHATE
     Indication: SUDDEN HEARING LOSS
     Dosage: 80 MG, OVER A 3HRS PERIOD
     Route: 041
  7. FUROSEMIDE. [Concomitant]
     Active Substance: FUROSEMIDE
     Dosage: UNK UNK, QD
     Route: 048
  8. DOXAZOSIN [Concomitant]
     Active Substance: DOXAZOSIN\DOXAZOSIN MESYLATE
     Dosage: UNK
     Route: 048
  9. TEPRENONE [Concomitant]
     Active Substance: TEPRENONE
     Dosage: UNK UNK, QD
     Route: 048

REACTIONS (9)
  - Chest discomfort [None]
  - Sudden hearing loss [Not Recovered/Not Resolved]
  - Troponin T increased [None]
  - Chest pain [None]
  - Electrocardiogram ST segment depression [None]
  - Myocardial ischaemia [None]
  - Acute myocardial infarction [None]
  - Angina pectoris [None]
  - Coronary artery stenosis [None]
